FAERS Safety Report 9391759 (Version 1)
Quarter: 2013Q3

REPORT INFORMATION
  Report Type: Report from Study
  Country: DK (occurrence: DK)
  Receive Date: 20130709
  Receipt Date: 20130709
  Transmission Date: 20140515
  Serious: Yes (Hospitalization)
  Sender: FDA-Public Use
  Company Number: DK-BRISTOL-MYERS SQUIBB COMPANY-19064757

PATIENT
  Age: 57 Year
  Sex: Female

DRUGS (5)
  1. PACLITAXEL [Suspect]
     Indication: OVARIAN CANCER
     Dosage: LAST DOSE PRIOR TO SAE ON 16MAY2013
     Route: 042
     Dates: start: 20130516
  2. CARBOPLATIN [Suspect]
     Indication: OVARIAN CANCER
     Dosage: LAST DOSE PRIOR TO SAE ON 16/MAY/2013
     Route: 042
     Dates: start: 20130516
  3. BEVACIZUMAB [Suspect]
     Indication: OVARIAN CANCER
     Dosage: LAST DOSE PRIOR TO SAE : 16MAY13
     Route: 042
     Dates: start: 20130516
  4. VOGALENE [Suspect]
     Route: 065
  5. CORODIL [Concomitant]
     Indication: HYPERTENSION
     Dosage: LAST DOSE PRIOR TO SAE ON 16/MAY/2013
     Route: 048

REACTIONS (2)
  - Dizziness [Recovering/Resolving]
  - Hyponatraemia [Recovering/Resolving]
